FAERS Safety Report 16005452 (Version 1)
Quarter: 2019Q1

REPORT INFORMATION
  Report Type: Spontaneous
  Country: US (occurrence: US)
  Receive Date: 20190131
  Receipt Date: 20190131
  Transmission Date: 20190418
  Serious: Yes (Hospitalization)
  Sender: FDA-Public Use
  Company Number: None

PATIENT
  Sex: Female
  Weight: 57.9 kg

DRUGS (2)
  1. PEMBROLIZUMAB. [Suspect]
     Active Substance: PEMBROLIZUMAB
     Dates: start: 20181228
  2. AZA (AZACITIDINE) [Suspect]
     Active Substance: AZACITIDINE
     Indication: ACUTE MYELOID LEUKAEMIA RECURRENT
     Dosage: 7 DAYS Q 28 DAYS
     Dates: start: 20181220, end: 20181227

REACTIONS (13)
  - Platelet count decreased [None]
  - Mucosal inflammation [None]
  - Epstein-Barr viraemia [None]
  - Cytomegalovirus viraemia [None]
  - Neutrophil count decreased [None]
  - Oral discharge [None]
  - White blood cell count decreased [None]
  - Graft versus host disease [None]
  - Febrile neutropenia [None]
  - Platelet transfusion [None]
  - Mouth haemorrhage [None]
  - Blood potassium decreased [None]
  - Weight decreased [None]

NARRATIVE: CASE EVENT DATE: 20190122
